FAERS Safety Report 9106448 (Version 1)
Quarter: 2013Q1

REPORT INFORMATION
  Report Type: Spontaneous
  Country: FR (occurrence: FR)
  Receive Date: 20130221
  Receipt Date: 20130221
  Transmission Date: 20140127
  Serious: Yes (Death, Hospitalization)
  Sender: FDA-Public Use
  Company Number: FR-ROCHE-1192339

PATIENT
  Age: 28 Year
  Sex: Female

DRUGS (2)
  1. AVASTIN [Suspect]
     Indication: ADENOCARCINOMA
     Route: 042
     Dates: start: 20120813, end: 20120907
  2. HYCAMTIN [Suspect]
     Indication: ADENOCARCINOMA
     Route: 042
     Dates: start: 20120813, end: 20120907

REACTIONS (2)
  - Gastrointestinal perforation [Fatal]
  - Abdominal pain [Fatal]
